FAERS Safety Report 16381067 (Version 2)
Quarter: 2021Q2

REPORT INFORMATION
  Report Type: Spontaneous
  Country: DE (occurrence: DE)
  Receive Date: 20190602
  Receipt Date: 20210607
  Transmission Date: 20210716
  Serious: Yes (Other)
  Sender: FDA-Public Use
  Company Number: PHHY2019DE120628

PATIENT
  Age: 30 Year
  Sex: Male
  Weight: 76 kg

DRUGS (28)
  1. ATAZANAVIR SULFATE. [Suspect]
     Active Substance: ATAZANAVIR SULFATE
     Indication: HIV INFECTION
     Dosage: 300 MG, QD (1DF=200 UNIT NOS CUMULATIVE DOSE TO FIRST REACTION 262500 MG, 300MG,QD)
     Route: 048
     Dates: start: 20100101
  2. PEGASYS [Suspect]
     Active Substance: PEGINTERFERON ALFA-2A
     Indication: CHRONIC HEPATITIS C
     Dosage: 180 UG, QW
     Route: 058
     Dates: start: 20120524, end: 20130425
  3. SUBUTEX [Concomitant]
     Active Substance: BUPRENORPHINE HYDROCHLORIDE
     Indication: PRODUCT USED FOR UNKNOWN INDICATION
     Dosage: 4 MG (DOSAGE FORM: UNSPECIFIED)
     Route: 065
  4. METAMIZOL HEXAL [Concomitant]
     Active Substance: METAMIZOLE SODIUM
     Indication: PRODUCT USED FOR UNKNOWN INDICATION
     Dosage: UNK
     Route: 065
  5. RIBAVIRIN. [Suspect]
     Active Substance: RIBAVIRIN
     Dosage: 800 MG, QD CUMULATIVE DOSE TO FIRST REACTION: 103473.69 MG 800 MG, QD)
     Route: 048
     Dates: start: 20120803, end: 20130425
  6. NORVIR [Suspect]
     Active Substance: RITONAVIR
     Indication: HIV INFECTION
     Dosage: 100 MG, QD (CUMULATIVE DOSE TO FIRST REACTION: 98658.76 MG 100 MG, QD)
     Route: 048
     Dates: start: 20100101
  7. NORVIR [Suspect]
     Active Substance: RITONAVIR
     Dosage: 100 MG, QD
     Route: 048
     Dates: start: 2013, end: 20160720
  8. PEGASYS [Suspect]
     Active Substance: PEGINTERFERON ALFA-2A
     Dosage: 180 UG, QW
     Route: 058
     Dates: start: 20130425
  9. AZITHROBETA [Concomitant]
     Active Substance: AZITHROMYCIN
     Indication: PRODUCT USED FOR UNKNOWN INDICATION
     Dosage: 500 MG, QD
     Route: 065
     Dates: start: 20130603, end: 20130605
  10. BETAGALEN [Concomitant]
     Indication: HEPATITIS C
     Dosage: UNK
     Route: 065
     Dates: start: 20120605
  11. RIBAVIRIN. [Suspect]
     Active Substance: RIBAVIRIN
     Indication: CHRONIC HEPATITIS C
     Dosage: 1000 MG, QD (CUMULATIVE DOSE TO FIRST REACTION: 103473.69 MG 1000 MG, QD)
     Route: 048
     Dates: start: 20120524, end: 20120802
  12. EMTRICITABINE [Suspect]
     Active Substance: EMTRICITABINE
     Dosage: 200 MG, QD (CUMULATIVE DOSE TO FIRST REACTION: 174926.88 MG200 MG, QD))
     Route: 048
     Dates: start: 20160720
  13. TRUVADA [Suspect]
     Active Substance: EMTRICITABINE\TENOFOVIR DISOPROXIL FUMARATE
     Indication: HIV INFECTION
     Dosage: 200 MG, QD
     Route: 048
     Dates: start: 20100101, end: 20160720
  14. COPEGUS [Suspect]
     Active Substance: RIBAVIRIN
     Dosage: 800 MG, QD (CUMULATIVE DOSE TO FIRST REACTION: 103473.69 MG800 MG, QD)
     Route: 048
     Dates: start: 20120803, end: 20130425
  15. COPEGUS [Suspect]
     Active Substance: RIBAVIRIN
     Indication: CHRONIC HEPATITIS C
     Dosage: 1000 MG, QD (CUMULATIVE DOSE TO FIRST REACTION: 103473.69 MG1000 MG, QD)
     Route: 048
     Dates: start: 20120524, end: 20120802
  16. ATAZANAVIR SULFATE. [Suspect]
     Active Substance: ATAZANAVIR SULFATE
     Dosage: 800 MG, QD
     Route: 048
     Dates: start: 20120803, end: 20130425
  17. NORVIR [Suspect]
     Active Substance: RITONAVIR
     Dosage: 20 MG, QD
     Route: 048
     Dates: start: 2013
  18. REYATAZ [Suspect]
     Active Substance: ATAZANAVIR SULFATE
     Dosage: 300 MG, QD (CUMULATIVE DOSE TO FIRST REACTION: 262500 MG 300 MG, QD)
     Route: 048
     Dates: start: 20160720
  19. ACC AKUT [Concomitant]
     Active Substance: ACETYLCYSTEINE
     Dosage: 60 MG, UNK
     Route: 065
     Dates: start: 20130314
  20. EMTRICITABINE [Suspect]
     Active Substance: EMTRICITABINE
     Indication: HIV INFECTION
     Dosage: 200 MG, QD (CUMULATIVE DOSE TO FIRST REACTION: 174926.88 MG 200 MG, QD)
     Route: 048
     Dates: start: 20100101, end: 20160720
  21. REYATAZ [Suspect]
     Active Substance: ATAZANAVIR SULFATE
     Indication: HIV INFECTION
     Dosage: 300 MG, QD (CUMULATIVE DOSE TO FIRST REACTION: 262500 MG 300 MG, QD)
     Route: 048
     Dates: start: 20100101, end: 20160720
  22. TRUVADA [Suspect]
     Active Substance: EMTRICITABINE\TENOFOVIR DISOPROXIL FUMARATE
     Dosage: 200 MG, QD (200MG/245MG)
     Route: 048
     Dates: start: 20160720
  23. ACC AKUT [Concomitant]
     Active Substance: ACETYLCYSTEINE
     Indication: PRODUCT USED FOR UNKNOWN INDICATION
     Dosage: 600 MG, UNK
     Route: 065
  24. METAMIZOL HEXAL [Concomitant]
     Active Substance: METAMIZOLE SODIUM
     Dosage: UNK
     Route: 048
     Dates: start: 20121221
  25. ATAZANAVIR SULFATE. [Suspect]
     Active Substance: ATAZANAVIR SULFATE
     Dosage: 1000 MG, QD
     Route: 048
     Dates: start: 20120524, end: 20120802
  26. CITALOPRAM [Concomitant]
     Active Substance: CITALOPRAM HYDROBROMIDE
     Indication: DRUG DEPENDENCE
     Dosage: 20 MG (DOSAGE FORM: UNSPECIFIED)
     Route: 065
     Dates: start: 20120621
  27. CITALOPRAM [Concomitant]
     Active Substance: CITALOPRAM HYDROBROMIDE
     Dosage: 40 MG, UNK
     Route: 065
     Dates: start: 20121220, end: 20130601
  28. TELAPREVIR [Suspect]
     Active Substance: TELAPREVIR
     Indication: CHRONIC HEPATITIS C
     Dosage: 2250 MG, QD
     Route: 048
     Dates: start: 20120524, end: 20120816

REACTIONS (22)
  - Headache [Recovered/Resolved]
  - Nausea [Not Recovered/Not Resolved]
  - Alanine aminotransferase increased [Not Recovered/Not Resolved]
  - Dry skin [Not Recovered/Not Resolved]
  - Dizziness [Recovered/Resolved]
  - Drug dependence [Not Recovered/Not Resolved]
  - Taste disorder [Not Recovered/Not Resolved]
  - Withdrawal syndrome [Not Recovered/Not Resolved]
  - Vertigo [Recovered/Resolved]
  - Restlessness [Recovered/Resolved]
  - Oral herpes [Recovered/Resolved]
  - Skin irritation [Not Recovered/Not Resolved]
  - Influenza like illness [Recovered/Resolved]
  - Anaemia [Not Recovered/Not Resolved]
  - Laboratory test abnormal [Unknown]
  - Nasopharyngitis [Recovered/Resolved]
  - Sinusitis [Recovered/Resolved]
  - Incorrect dose administered [Unknown]
  - Impaired healing [Recovered/Resolved]
  - Depressed mood [Not Recovered/Not Resolved]
  - Fatigue [Recovered/Resolved]
  - Pruritus [Not Recovered/Not Resolved]

NARRATIVE: CASE EVENT DATE: 20120524
